FAERS Safety Report 12767299 (Version 1)
Quarter: 2016Q3

REPORT INFORMATION
  Report Type: Report from Study
  Country: US (occurrence: US)
  Receive Date: 20160921
  Receipt Date: 20160921
  Transmission Date: 20161109
  Serious: Yes (Disabling)
  Sender: FDA-Public Use
  Company Number: US-TAKEDA-2016MPI008178

PATIENT
  Age: 49 Year
  Sex: Female

DRUGS (2)
  1. ZOMETA [Concomitant]
     Active Substance: ZOLEDRONIC ACID
     Dosage: UNK
     Route: 065
     Dates: start: 20140101
  2. IXAZOMIB [Suspect]
     Active Substance: IXAZOMIB
     Indication: PLASMA CELL MYELOMA
     Dosage: 4 MG, UNK
     Route: 048
     Dates: start: 20160201

REACTIONS (4)
  - Osteoarthritis [Unknown]
  - Off label use [Unknown]
  - Pneumonia [Unknown]
  - Pain [Unknown]

NARRATIVE: CASE EVENT DATE: 20160901
